FAERS Safety Report 18283214 (Version 1)
Quarter: 2020Q3

REPORT INFORMATION
  Report Type: Report from Study
  Country: CA (occurrence: CA)
  Receive Date: 20200918
  Receipt Date: 20200918
  Transmission Date: 20201103
  Serious: Yes (Other)
  Sender: FDA-Public Use
  Company Number: CA-MYLANLABS-2020M1066494

PATIENT
  Age: 31 Year
  Sex: Male
  Weight: 122 kg

DRUGS (4)
  1. OLANZAPINE. [Concomitant]
     Active Substance: OLANZAPINE
     Dosage: 10 MILLIGRAM, HS
     Dates: start: 20200107, end: 20200407
  2. OLANZAPINE. [Concomitant]
     Active Substance: OLANZAPINE
     Dosage: 5 MILLIGRAM, HS
     Dates: start: 20200507, end: 20200807
  3. ARIPIPRAZOLE. [Concomitant]
     Active Substance: ARIPIPRAZOLE
     Dosage: 400 MILLIGRAM, Q28D
     Route: 030
  4. CLOZAPINE. [Suspect]
     Active Substance: CLOZAPINE
     Indication: SCHIZOPHRENIA
     Dosage: 75 MILLIGRAM, HS
     Route: 048
     Dates: start: 20200701, end: 20200717

REACTIONS (5)
  - Decreased appetite [Recovered/Resolved]
  - Tachycardia [Recovered/Resolved]
  - Lipase increased [Recovered/Resolved]
  - Myocarditis [Unknown]
  - Pyrexia [Recovered/Resolved]

NARRATIVE: CASE EVENT DATE: 202007
